FAERS Safety Report 6558569-7 (Version None)
Quarter: 2010Q1

REPORT INFORMATION
  Report Type: 
  Country: None (occurrence: None)
  Receive Date: 20100129
  Receipt Date: 20091127
  Transmission Date: 20100710
  Serious: No
  Sender: FDA-Public Use
  Company Number: A0806757A

PATIENT
  Age: 49 Year
  Sex: Female

DRUGS (1)
  1. MEPRON [Suspect]
     Dosage: 1TSP TWICE PER DAY
     Route: 048
     Dates: start: 20080901

REACTIONS (4)
  - DYSURIA [None]
  - PRODUCT QUALITY ISSUE [None]
  - PRODUCT TASTE ABNORMAL [None]
  - VULVOVAGINAL BURNING SENSATION [None]
